FAERS Safety Report 6578306-X (Version None)
Quarter: 2010Q1

REPORT INFORMATION
  Report Type: 
  Country: None (occurrence: None)
  Receive Date: 20100211
  Receipt Date: 20100205
  Transmission Date: 20100710
  Serious: Yes (Other)
  Sender: FDA-Public Use
  Company Number: B0632832A

PATIENT
  Age: 2 Year
  Sex: Female

DRUGS (2)
  1. FLONASE [Suspect]
     Indication: DRUG USE FOR UNKNOWN INDICATION
     Route: 045
     Dates: start: 20100204, end: 20100204
  2. NUROFEN [Concomitant]

REACTIONS (9)
  - APNOEA [None]
  - DISORIENTATION [None]
  - DYSPNOEA [None]
  - EYE PAIN [None]
  - EYE ROLLING [None]
  - HAEMOPTYSIS [None]
  - LIVIDITY [None]
  - RHINORRHOEA [None]
  - VOMITING [None]
